FAERS Safety Report 10089535 (Version 2)
Quarter: 2014Q2

REPORT INFORMATION
  Report Type: Spontaneous
  Country: CA (occurrence: CA)
  Receive Date: 20140421
  Receipt Date: 20140421
  Transmission Date: 20141212
  Serious: Yes (Death)
  Sender: FDA-Public Use
  Company Number: CA-B.I. PHARMACEUTICALS,INC./RIDGEFIELD-2014-BI-16409CN

PATIENT
  Age: 85 Year
  Sex: Female

DRUGS (8)
  1. PRADAXA [Suspect]
     Indication: CEREBROVASCULAR ACCIDENT PROPHYLAXIS
     Dosage: 110 MG
     Route: 048
     Dates: start: 20120525, end: 20130302
  2. PRADAXA [Suspect]
     Indication: ATRIAL FIBRILLATION
  3. ATENOLOL [Concomitant]
     Route: 065
  4. LASIX [Concomitant]
     Route: 065
  5. MICARDIS [Concomitant]
     Route: 065
  6. NORTRIPTYLINE [Concomitant]
     Route: 065
  7. NORVASC [Concomitant]
     Route: 065
  8. PREVACID [Concomitant]
     Route: 065

REACTIONS (12)
  - Gastrointestinal haemorrhage [Fatal]
  - Sepsis [Fatal]
  - Rhabdomyolysis [Fatal]
  - Decubitus ulcer [Fatal]
  - Renal failure acute [Fatal]
  - Pneumonia viral [Fatal]
  - Upper limb fracture [Fatal]
  - Loss of consciousness [Unknown]
  - Fall [Unknown]
  - Haematemesis [Unknown]
  - Melaena [Unknown]
  - Haematochezia [Unknown]
